FAERS Safety Report 10435487 (Version 2)
Quarter: 2014Q4

REPORT INFORMATION
  Report Type: Report from Study
  Country: US (occurrence: US)
  Receive Date: 20140908
  Receipt Date: 20141024
  Transmission Date: 20150528
  Serious: Yes (Hospitalization)
  Sender: FDA-Public Use
  Company Number: US-BIOGENIDEC-2014BI090376

PATIENT
  Sex: Female

DRUGS (1)
  1. TYSABRI [Suspect]
     Active Substance: NATALIZUMAB
     Indication: MULTIPLE SCLEROSIS
     Route: 042
     Dates: start: 20140717, end: 20140814

REACTIONS (11)
  - Coordination abnormal [Recovered/Resolved]
  - Hypoaesthesia [Recovered/Resolved]
  - Mental disorder [Recovered/Resolved]
  - Suicidal ideation [Unknown]
  - Musculoskeletal disorder [Recovered/Resolved]
  - Insomnia [Not Recovered/Not Resolved]
  - Dry mouth [Recovered/Resolved]
  - Sleep disorder [Recovered/Resolved]
  - Surgery [Unknown]
  - Limb discomfort [Recovered/Resolved]
  - Malaise [Recovered/Resolved]

NARRATIVE: CASE EVENT DATE: 2014
